FAERS Safety Report 14196281 (Version 2)
Quarter: 2017Q4

REPORT INFORMATION
  Report Type: Spontaneous
  Country: GB (occurrence: GB)
  Receive Date: 20171116
  Receipt Date: 20171127
  Transmission Date: 20180321
  Serious: Yes (Other)
  Sender: FDA-Public Use
  Company Number: GB-ELI_LILLY_AND_COMPANY-GB201711004952

PATIENT
  Sex: Female

DRUGS (1)
  1. CYMBALTA [Suspect]
     Active Substance: DULOXETINE HYDROCHLORIDE
     Indication: FIBROMYALGIA
     Dosage: 20 MG, UNKNOWN
     Route: 065

REACTIONS (9)
  - Depressed mood [Unknown]
  - Disturbance in attention [Unknown]
  - Joint stiffness [Unknown]
  - Irritability [Unknown]
  - Headache [Unknown]
  - Pain [Unknown]
  - Feeling of despair [Unknown]
  - Intentional product misuse [Unknown]
  - Drug withdrawal syndrome [Not Recovered/Not Resolved]
